FAERS Safety Report 4771484-4 (Version None)
Quarter: 2005Q3

REPORT INFORMATION
  Report Type: 
  Country: None (occurrence: None)
  Receive Date: 20050914
  Receipt Date: 20050914
  Transmission Date: 20060218
  Serious: Yes (Death, Hospitalization, Disabling)
  Sender: FDA-Public Use
  Company Number: None

PATIENT
  Age: 41 Year
  Sex: Male
  Weight: 63.5036 kg

DRUGS (1)
  1. VIOXX [Suspect]
     Indication: PAIN
     Dosage: 1 TABLET 1 X A DAY
     Dates: start: 20040401, end: 20040601

REACTIONS (7)
  - CARDIAC FAILURE CONGESTIVE [None]
  - HEPATOCELLULAR DAMAGE [None]
  - HYPERTENSION [None]
  - MUSCULOSKELETAL DISORDER [None]
  - OEDEMA PERIPHERAL [None]
  - RENAL FAILURE [None]
  - RHABDOMYOLYSIS [None]
